FAERS Safety Report 10032949 (Version 3)
Quarter: 2014Q2

REPORT INFORMATION
  Report Type: Spontaneous
  Country: US (occurrence: US)
  Receive Date: 20140324
  Receipt Date: 20140529
  Transmission Date: 20141212
  Serious: Yes (Other)
  Sender: FDA-Public Use
  Company Number: US-TEVA-469693USA

PATIENT
  Sex: Female

DRUGS (1)
  1. CARBIDOPA AND LEVODOPA [Suspect]
     Indication: PARKINSON^S DISEASE
     Dosage: 25/100 1.5 TAB 4 TIMES PER DAY
     Dates: start: 20140316

REACTIONS (8)
  - Paralysis [Unknown]
  - Musculoskeletal stiffness [Unknown]
  - Dysgeusia [Unknown]
  - Dysstasia [Unknown]
  - Hyperhidrosis [Unknown]
  - Malaise [Unknown]
  - Product quality issue [Unknown]
  - Skin lesion [Unknown]
